FAERS Safety Report 20436152 (Version 2)
Quarter: 2022Q1

REPORT INFORMATION
  Report Type: Report from Study
  Country: MX (occurrence: MX)
  Receive Date: 20220207
  Receipt Date: 20220212
  Transmission Date: 20220423
  Serious: Yes (Other)
  Sender: FDA-Public Use
  Company Number: MX-NOVARTISPH-PHHY2018MX089356

PATIENT
  Age: 45 Year
  Sex: Male
  Weight: 65 kg

DRUGS (11)
  1. ENTRESTO [Suspect]
     Active Substance: SACUBITRIL\VALSARTAN
     Indication: Cardiac disorder
     Dosage: 0.5 DOSAGE FORM (50 MG), BID (TWICE A DAY / IN THE MORNING AND AT NIGHT)
     Route: 048
     Dates: start: 20180623
  2. ENTRESTO [Suspect]
     Active Substance: SACUBITRIL\VALSARTAN
     Dosage: 0.5 DOSAGE FORM (50 MG), BID (TWICE A DAY / IN THE MORNING AND AT NIGHT)
     Route: 048
     Dates: start: 20180723
  3. ENTRESTO [Suspect]
     Active Substance: SACUBITRIL\VALSARTAN
     Dosage: 50 MG, QD (1 YEAR AGO)
     Route: 048
  4. SPIRONOLACTONE [Concomitant]
     Active Substance: SPIRONOLACTONE
     Indication: Cardiac disorder
     Dosage: 100 MG, Q12H
     Route: 048
     Dates: start: 20180723
  5. ASPIRIN [Concomitant]
     Active Substance: ASPIRIN
     Indication: Cardiac disorder
     Dosage: 1 DF, QD (TABLET)
     Route: 048
     Dates: start: 20180723
  6. ASPIRIN [Concomitant]
     Active Substance: ASPIRIN
     Dosage: 1 DOSAGE FORM (100MG), ONLY TOOK IT FOR 15 DAYS, CAPSULE) , QD
     Route: 048
  7. ASPIRIN [Concomitant]
     Active Substance: ASPIRIN
     Dosage: 1 DOSAGE FORM (100 MG), PRN
     Route: 048
  8. FUROSEMIDE [Concomitant]
     Active Substance: FUROSEMIDE
     Indication: Cardiac disorder
     Dosage: 40 MG, Q12H
     Route: 048
     Dates: start: 20180723
  9. FUROSEMIDE [Concomitant]
     Active Substance: FUROSEMIDE
     Indication: Fluid retention
  10. OMEPRAZOLE [Concomitant]
     Active Substance: OMEPRAZOLE
     Indication: Cardiac disorder
     Dosage: 20 MG, QD
     Route: 048
     Dates: start: 20180723
  11. OMEPRAZOLE [Concomitant]
     Active Substance: OMEPRAZOLE
     Indication: Dyspepsia

REACTIONS (11)
  - Gangrene [Unknown]
  - Inguinal hernia [Not Recovered/Not Resolved]
  - Scar [Not Recovered/Not Resolved]
  - Pain [Unknown]
  - COVID-19 [Recovered/Resolved]
  - Oxygen saturation decreased [Recovered/Resolved]
  - Oxygen saturation decreased [Recovered/Resolved]
  - Wrong technique in product usage process [Unknown]
  - Prescribed underdose [Unknown]
  - Product prescribing error [Not Recovered/Not Resolved]
  - Product use in unapproved indication [Not Recovered/Not Resolved]

NARRATIVE: CASE EVENT DATE: 20180723
